FAERS Safety Report 5958478-8 (Version None)
Quarter: 2008Q4

REPORT INFORMATION
  Report Type: 
  Country: None (occurrence: None)
  Receive Date: 20081119
  Receipt Date: 20081113
  Transmission Date: 20090506
  Serious: No
  Sender: FDA-Public Use
  Company Number: GB-ROCHE-597278

PATIENT
  Sex: Female

DRUGS (1)
  1. ROACCUTANE [Suspect]
     Indication: ACNE
     Dosage: APPROXIMATELY 55MG PER DAY.
     Route: 065
     Dates: start: 20080622, end: 20081022

REACTIONS (2)
  - NO ADVERSE EVENT [None]
  - PREGNANCY [None]
